FAERS Safety Report 8604536-9 (Version None)
Quarter: 2012Q3

REPORT INFORMATION
  Report Type: 
  Country: None (occurrence: None)
  Receive Date: 20120820
  Receipt Date: 20120810
  Transmission Date: 20120928
  Serious: Yes (Hospitalization, Other)
  Sender: FDA-Public Use
  Company Number: CA-JNJFOC-20120713806

PATIENT
  Sex: Female
  Weight: 85 kg

DRUGS (12)
  1. REMICADE [Suspect]
     Indication: RHEUMATOID ARTHRITIS
     Dosage: LAST INFUSION
     Route: 042
     Dates: start: 20120618
  2. METHOTREXATE [Concomitant]
     Route: 065
  3. REMICADE [Suspect]
     Route: 042
     Dates: start: 20091112
  4. CYCLOBENZAPRINE [Concomitant]
     Route: 065
  5. VENTOLIN [Concomitant]
     Route: 065
  6. PLAQUENIL [Concomitant]
     Route: 065
  7. SYMBICORT [Concomitant]
     Route: 065
  8. ZOPLICONE [Concomitant]
     Route: 065
  9. SULFASALAZINE [Concomitant]
     Route: 065
  10. FOLIC ACID [Concomitant]
     Route: 065
  11. LANSOPRAZOLE [Concomitant]
     Route: 065
  12. KETOROLAC [Concomitant]
     Route: 065

REACTIONS (2)
  - PNEUMONITIS [None]
  - ARTHROSCOPY [None]
